FAERS Safety Report 8139095-0 (Version None)
Quarter: 2012Q1

REPORT INFORMATION
  Report Type: 
  Country: None (occurrence: None)
  Receive Date: 20120215
  Receipt Date: 20120210
  Transmission Date: 20120608
  Serious: Yes (Hospitalization, Other)
  Sender: FDA-Public Use
  Company Number: BR-PFIZER INC-2012036549

PATIENT
  Age: 71 Year
  Sex: Male

DRUGS (2)
  1. VIAGRA [Suspect]
     Dosage: 50 MG, UNK
     Route: 048
     Dates: start: 20100710
  2. VESICARE [Concomitant]
     Indication: URINARY INCONTINENCE
     Dosage: ONE TABLET ONCE DAILY

REACTIONS (1)
  - PROSTATE CANCER [None]
